FAERS Safety Report 9828897 (Version 2)
Quarter: 2014Q1

REPORT INFORMATION
  Report Type: Spontaneous
  Country: JP (occurrence: JP)
  Receive Date: 20140118
  Receipt Date: 20140118
  Transmission Date: 20141002
  Serious: Yes (Hospitalization, Other)
  Sender: FDA-Public Use
  Company Number: JP-ABBVIE-13P-087-1173054-00

PATIENT
  Age: 52 Year
  Sex: Male
  Weight: 58.6 kg

DRUGS (5)
  1. NORVIR [Suspect]
     Indication: HIV INFECTION
     Route: 048
     Dates: start: 20070813, end: 20110605
  2. NORVIR [Suspect]
     Indication: HIV INFECTION
     Route: 048
     Dates: start: 20110606, end: 20130616
  3. REYATAZ [Suspect]
     Indication: HIV INFECTION
     Route: 048
     Dates: start: 20070813, end: 20130616
  4. TRUVADA [Suspect]
     Indication: HIV INFECTION
     Route: 048
     Dates: start: 20070813, end: 20130616
  5. ABACAVIR W/LAMIVUDINE [Concomitant]
     Indication: HIV INFECTION

REACTIONS (5)
  - Cholelithiasis [Recovering/Resolving]
  - Abdominal discomfort [Recovering/Resolving]
  - Nephrolithiasis [Recovered/Resolved]
  - Renal impairment [Unknown]
  - Blood bilirubin increased [Recovered/Resolved]
